FAERS Safety Report 4930263-5 (Version None)
Quarter: 2006Q1

REPORT INFORMATION
  Report Type: 
  Country: None (occurrence: None)
  Receive Date: 20060228
  Receipt Date: 20060213
  Transmission Date: 20060701
  Serious: Yes (Hospitalization)
  Sender: FDA-Public Use
  Company Number: 97/00245-GBD

PATIENT
  Age: 21 Year
  Sex: Female
  Weight: 52 kg

DRUGS (5)
  1. BETASERON [Suspect]
     Indication: RELAPSING-REMITTING MULTIPLE SCLEROSIS
     Dosage: SEE IMAGE
     Route: 058
     Dates: start: 19970528, end: 19970601
  2. BETASERON [Suspect]
     Indication: RELAPSING-REMITTING MULTIPLE SCLEROSIS
     Dosage: SEE IMAGE
     Route: 058
     Dates: start: 19970603, end: 19970611
  3. LIORESAL [Concomitant]
  4. DECORTIN-H [Concomitant]
  5. RIOPAN [Concomitant]

REACTIONS (2)
  - CONVULSION [None]
  - DELUSIONAL DISORDER, PERSECUTORY TYPE [None]
